FAERS Safety Report 6678228-X (Version None)
Quarter: 2010Q2

REPORT INFORMATION
  Report Type: 
  Country: None (occurrence: None)
  Receive Date: 20100408
  Receipt Date: 20100408
  Transmission Date: 20101027
  Serious: No
  Sender: FDA-Public Use
  Company Number: None

PATIENT
  Age: 60 Year
  Sex: Female
  Weight: 73.0291 kg

DRUGS (1)
  1. CITALOPRAM HYDROBROMIDE [Suspect]
     Indication: DEPRESSION
     Dosage: 1 TABLET 1 TIME PER DAY PO
     Route: 048
     Dates: start: 20091229, end: 20100115

REACTIONS (2)
  - ARTHRALGIA [None]
  - VISUAL IMPAIRMENT [None]
